FAERS Safety Report 17858701 (Version 1)
Quarter: 2020Q2

REPORT INFORMATION
  Report Type: Report from Study
  Country: None (occurrence: US)
  Receive Date: 20200604
  Receipt Date: 20200604
  Transmission Date: 20200714
  Serious: No
  Sender: FDA-Public Use
  Company Number: US-US WORLDMEDS, LLC-USW201912-002327

PATIENT
  Age: 79 Year
  Sex: Male

DRUGS (15)
  1. MULTIPLE VITAMINS [Concomitant]
     Active Substance: VITAMINS
  2. ALPHA LIPOIC [Concomitant]
  3. TAMSULOSIN [Concomitant]
     Active Substance: TAMSULOSIN
  4. APIXABAN [Concomitant]
     Active Substance: APIXABAN
  5. APOKYN [Suspect]
     Active Substance: APOMORPHINE HYDROCHLORIDE
  6. RASAGALINE [Concomitant]
     Active Substance: RASAGILINE
  7. SINEMET [Concomitant]
     Active Substance: CARBIDOPA\LEVODOPA
  8. ENTACAPONE. [Concomitant]
     Active Substance: ENTACAPONE
  9. ACETYLSALICYLIC ACID [Concomitant]
     Active Substance: ASPIRIN
  10. ASA [Concomitant]
     Active Substance: ASPIRIN
  11. SINEMET CR [Concomitant]
     Active Substance: CARBIDOPA\LEVODOPA
  12. QUETIAPINE. [Concomitant]
     Active Substance: QUETIAPINE
  13. APOKYN [Suspect]
     Active Substance: APOMORPHINE HYDROCHLORIDE
     Indication: PARKINSON^S DISEASE
     Route: 058
     Dates: start: 20190430
  14. MELATONIN [Concomitant]
     Active Substance: MELATONIN
  15. PRAVASTATIN. [Concomitant]
     Active Substance: PRAVASTATIN

REACTIONS (1)
  - Dyskinesia [Recovered/Resolved]

NARRATIVE: CASE EVENT DATE: 20191209
